FAERS Safety Report 25378768 (Version 1)
Quarter: 2025Q2

REPORT INFORMATION
  Report Type: Spontaneous
  Country: US (occurrence: US)
  Receive Date: 20250530
  Receipt Date: 20250530
  Transmission Date: 20250717
  Serious: Yes (Life-Threatening, Hospitalization, Other)
  Sender: UNICHEM
  Company Number: US-UNICHEM LABORATORIES LIMITED-UNI-2025-US-002357

PATIENT

DRUGS (6)
  1. AMIODARONE [Suspect]
     Active Substance: AMIODARONE
     Indication: Atrial flutter
     Route: 048
  2. AMIODARONE [Suspect]
     Active Substance: AMIODARONE
     Indication: Ejection fraction
     Route: 048
  3. AMIODARONE [Suspect]
     Active Substance: AMIODARONE
     Route: 042
  4. AMIODARONE [Suspect]
     Active Substance: AMIODARONE
     Route: 042
  5. AMIODARONE [Suspect]
     Active Substance: AMIODARONE
     Route: 048
  6. AMIODARONE [Suspect]
     Active Substance: AMIODARONE
     Route: 065

REACTIONS (2)
  - Hyperthyroidism [Unknown]
  - Toxicity to various agents [Unknown]
